FAERS Safety Report 7424775-2 (Version None)
Quarter: 2011Q2

REPORT INFORMATION
  Report Type: 
  Country: None (occurrence: None)
  Receive Date: 20110419
  Receipt Date: 20100519
  Transmission Date: 20111010
  Serious: No
  Sender: FDA-Public Use
  Company Number: US-ABBOTT-10P-163-0647046-00

PATIENT
  Sex: Female

DRUGS (2)
  1. LUPRON DEPOT-PED [Suspect]
     Indication: PRECOCIOUS PUBERTY
     Dates: start: 20081101, end: 20090301
  2. LUPRON DEPOT-PED [Suspect]
     Indication: BREAST ENLARGEMENT
     Dates: start: 20091101

REACTIONS (5)
  - INJECTION SITE ERYTHEMA [None]
  - ABSCESS [None]
  - BREAST ENLARGEMENT [None]
  - INJECTION SITE INDURATION [None]
  - INJECTION SITE PAIN [None]
